FAERS Safety Report 20382366 (Version 1)
Quarter: 2022Q1

REPORT INFORMATION
  Report Type: Spontaneous
  Country: US (occurrence: None)
  Receive Date: 20220126
  Receipt Date: 20220126
  Transmission Date: 20220423
  Serious: No
  Sender: FDA-Public Use
  Company Number: None

PATIENT
  Age: 46 Year
  Sex: Female

DRUGS (1)
  1. CUCUMBER MELON HAND SANITIZER [Suspect]
     Active Substance: ALCOHOL
     Indication: COVID-19 prophylaxis

REACTIONS (2)
  - Headache [None]
  - Disorientation [None]

NARRATIVE: CASE EVENT DATE: 20220126
